FAERS Safety Report 7576912-7 (Version None)
Quarter: 2011Q2

REPORT INFORMATION
  Report Type: 
  Country: None (occurrence: None)
  Receive Date: 20110628
  Receipt Date: 20110613
  Transmission Date: 20111010
  Serious: Yes (Hospitalization, Other)
  Sender: FDA-Public Use
  Company Number: US-BAYER-201041859NA

PATIENT
  Age: 33 Year
  Sex: Female
  Weight: 63.492 kg

DRUGS (12)
  1. YASMIN [Suspect]
     Dosage: UNK
     Dates: start: 20080201, end: 20080601
  2. XANAX [Concomitant]
     Indication: ANXIETY
     Route: 048
  3. DROSPIRENONE AND ETHINYL ESTRADIOL [Suspect]
     Dosage: UNK
     Dates: start: 20090701, end: 20090801
  4. YASMIN [Suspect]
     Indication: CONTRACEPTION
     Dosage: UNK
     Route: 048
     Dates: start: 20061001, end: 20070101
  5. PAXIL [Concomitant]
     Indication: DEPRESSION
     Dosage: 25 MG, QD
     Route: 048
     Dates: start: 20070101
  6. YASMIN [Suspect]
     Dosage: UNK
     Dates: start: 20070501, end: 20070801
  7. LORTAB [Concomitant]
     Indication: MIGRAINE
     Dosage: UNK
     Dates: start: 20000101
  8. PAXIL [Concomitant]
     Indication: ANXIETY
  9. DROSPIRENONE AND ETHINYL ESTRADIOL [Suspect]
     Indication: CONTRACEPTION
     Dosage: UNK
     Route: 048
     Dates: start: 20080701, end: 20090201
  10. LORTAB [Concomitant]
     Indication: PAIN IN EXTREMITY
  11. ALPRAZOLAM [Concomitant]
     Indication: ANXIETY
     Dosage: UNK
     Dates: start: 20050101, end: 20090101
  12. YASMIN [Suspect]
     Dosage: UNK
     Dates: start: 20090201, end: 20090601

REACTIONS (3)
  - EMOTIONAL DISTRESS [None]
  - DEEP VEIN THROMBOSIS [None]
  - PAIN IN EXTREMITY [None]
